FAERS Safety Report 11631954 (Version 1)
Quarter: 2015Q4

REPORT INFORMATION
  Report Type: Spontaneous
  Country: US (occurrence: None)
  Receive Date: 20151001
  Receipt Date: 20151001
  Transmission Date: 20160304
  Serious: Yes (Hospitalization)
  Sender: FDA-Public Use
  Company Number: UCM201508-000672

PATIENT
  Age: 83 Year
  Sex: Female
  Weight: 55.79 kg

DRUGS (5)
  1. ENALAPRIL [Concomitant]
     Active Substance: ENALAPRIL
  2. DIGOXIN. [Concomitant]
     Active Substance: DIGOXIN
  3. WARFARIN [Concomitant]
     Active Substance: WARFARIN
  4. HYDROCHLOROTHIAZIDE 25 MG TABLETS [Suspect]
     Active Substance: HYDROCHLOROTHIAZIDE
     Indication: HYPERTENSION
     Dosage: 1 TABLET IN THE MORNING
     Route: 048
     Dates: end: 20150808
  5. ATENOLOL. [Concomitant]
     Active Substance: ATENOLOL

REACTIONS (4)
  - Hyponatraemia [None]
  - Asthenia [None]
  - Pollakiuria [None]
  - Pain [None]

NARRATIVE: CASE EVENT DATE: 20150806
